FAERS Safety Report 6060689-0 (Version None)
Quarter: 2009Q1

REPORT INFORMATION
  Report Type: 
  Country: None (occurrence: None)
  Receive Date: 20090202
  Receipt Date: 20090202
  Transmission Date: 20090719
  Serious: Yes (Other)
  Sender: FDA-Public Use
  Company Number: US-PFIZER INC-2008151869

PATIENT

DRUGS (1)
  1. LYRICA [Suspect]
     Dosage: 300 MG, 1X/DAY

REACTIONS (2)
  - DEHYDRATION [None]
  - POLYURIA [None]
